FAERS Safety Report 9770603 (Version 2)
Quarter: 2014Q1

REPORT INFORMATION
  Report Type: Spontaneous
  Country: US (occurrence: US)
  Receive Date: 20131218
  Receipt Date: 20140116
  Transmission Date: 20141002
  Serious: Yes (Other)
  Sender: FDA-Public Use
  Company Number: US-GLAXOSMITHKLINE-A1053231A

PATIENT
  Age: 81 Year
  Sex: Male

DRUGS (5)
  1. ADVAIR [Suspect]
     Indication: CHRONIC OBSTRUCTIVE PULMONARY DISEASE
     Dosage: 1PUFF PER DAY
     Route: 055
     Dates: start: 2009
  2. NEURONTIN [Concomitant]
  3. UNSPECIFIED MEDICATION [Concomitant]
  4. FLOMAX [Concomitant]
  5. NEBULIZER [Concomitant]

REACTIONS (2)
  - Cataract operation [Recovered/Resolved]
  - Therapy cessation [Recovered/Resolved]
